FAERS Safety Report 20615924 (Version 3)
Quarter: 2022Q2

REPORT INFORMATION
  Report Type: Spontaneous
  Country: US (occurrence: US)
  Receive Date: 20220321
  Receipt Date: 20220616
  Transmission Date: 20220721
  Serious: No
  Sender: FDA-Public Use
  Company Number: US-SA-2022SA092019

PATIENT
  Age: 31 Year
  Sex: Male

DRUGS (2)
  1. CERDELGA [Suspect]
     Active Substance: ELIGLUSTAT
     Indication: Gaucher^s disease
     Dosage: 80 MG, BID
     Route: 048
     Dates: start: 20190725
  2. CERDELGA [Suspect]
     Active Substance: ELIGLUSTAT
     Dosage: UNK UN
     Route: 048

REACTIONS (3)
  - Food poisoning [Recovered/Resolved]
  - Vomiting [Not Recovered/Not Resolved]
  - Product dose omission issue [Unknown]
